FAERS Safety Report 8021718-8 (Version None)
Quarter: 2012Q1

REPORT INFORMATION
  Report Type: 
  Country: None (occurrence: None)
  Receive Date: 20120104
  Receipt Date: 20111223
  Transmission Date: 20120608
  Serious: Yes (Hospitalization)
  Sender: FDA-Public Use
  Company Number: PHFR2011GB05609

PATIENT
  Sex: Male

DRUGS (4)
  1. CLOZARIL [Suspect]
     Dosage: 12.5 MG MANE
     Dates: start: 20110921
  2. QUETIAPINE [Concomitant]
  3. CLOZARIL [Suspect]
     Indication: SCHIZOPHRENIA
     Route: 048
     Dates: start: 20110919
  4. CLOZARIL [Suspect]
     Dosage: 12.5 MG NOCTE
     Dates: start: 20110920

REACTIONS (10)
  - NEUTROPENIA [None]
  - PSYCHOTIC DISORDER [None]
  - IRRITABILITY [None]
  - POOR VENOUS ACCESS [None]
  - MENTAL DISORDER [None]
  - INFLUENZA LIKE ILLNESS [None]
  - ABDOMINAL PAIN UPPER [None]
  - MALAISE [None]
  - VIRAL INFECTION [None]
  - NASOPHARYNGITIS [None]
